FAERS Safety Report 13123437 (Version 1)
Quarter: 2017Q1

REPORT INFORMATION
  Report Type: Spontaneous
  Country: GB (occurrence: GB)
  Receive Date: 20170117
  Receipt Date: 20170117
  Transmission Date: 20170428
  Serious: Yes (Other)
  Sender: FDA-Public Use
  Company Number: GB-009507513-1701GBR006138

PATIENT
  Age: 18 Year
  Sex: Female
  Weight: 50 kg

DRUGS (1)
  1. ETONOGESTREL [Suspect]
     Active Substance: ETONOGESTREL
     Route: 059
     Dates: start: 20170103

REACTIONS (7)
  - Nausea [Unknown]
  - Amenorrhoea [Unknown]
  - Abortion spontaneous [Unknown]
  - Vaginal haemorrhage [Unknown]
  - Pain [Unknown]
  - Pregnancy with implant contraceptive [Recovered/Resolved]
  - Abdominal distension [Unknown]

NARRATIVE: CASE EVENT DATE: 20170103
